FAERS Safety Report 18186671 (Version 3)
Quarter: 2020Q4

REPORT INFORMATION
  Report Type: Spontaneous
  Country: US (occurrence: US)
  Receive Date: 20200824
  Receipt Date: 20201201
  Transmission Date: 20210113
  Serious: Yes (Other)
  Sender: FDA-Public Use
  Company Number: US-PFIZER INC-2020323106

PATIENT
  Age: 57 Year
  Sex: Female
  Weight: 68.93 kg

DRUGS (12)
  1. MACROBID [CLARITHROMYCIN] [Concomitant]
     Active Substance: CLARITHROMYCIN
     Dosage: UNK
  2. CLOBETASOL [Concomitant]
     Active Substance: CLOBETASOL
     Dosage: UNK
  3. OXYCODONE [Concomitant]
     Active Substance: OXYCODONE
     Dosage: UNK
  4. IBRANCE [Suspect]
     Active Substance: PALBOCICLIB
     Indication: SARCOMA
     Dosage: 125 MG, CYCLIC (ONCE DAILY 21 OUT OF 28 DAYS)
     Route: 048
     Dates: start: 2020
  5. SENNA ACUTIFOLIA [Concomitant]
     Dosage: UNK
  6. IBRANCE [Suspect]
     Active Substance: PALBOCICLIB
     Indication: ILLNESS
     Dosage: 125 MG, CYCLIC (DAILY FOR 21 OF 28 DAYS)
     Route: 048
     Dates: start: 202007, end: 2020
  7. MONTELUKAST [Concomitant]
     Active Substance: MONTELUKAST SODIUM
     Dosage: UNK
  8. ONDANSETRON [Concomitant]
     Active Substance: ONDANSETRON
     Dosage: UNK
  9. HYDROCORTISONE. [Concomitant]
     Active Substance: HYDROCORTISONE
     Dosage: UNK
  10. COLACE [Concomitant]
     Active Substance: DOCUSATE SODIUM
     Dosage: UNK
  11. LIDOCAINE. [Concomitant]
     Active Substance: LIDOCAINE
     Dosage: UNK
  12. CEPHALEXINE [Concomitant]
     Active Substance: CEPHALEXIN
     Dosage: UNK

REACTIONS (8)
  - Haemorrhoids [Unknown]
  - Urinary tract infection [Not Recovered/Not Resolved]
  - Flatulence [Unknown]
  - Incorrect product administration duration [Unknown]
  - White blood cell count decreased [Unknown]
  - Constipation [Unknown]
  - Off label use [Unknown]
  - Pulmonary thrombosis [Unknown]

NARRATIVE: CASE EVENT DATE: 2020
